FAERS Safety Report 7554967-3 (Version None)
Quarter: 2011Q2

REPORT INFORMATION
  Report Type: 
  Country: None (occurrence: None)
  Receive Date: 20110617
  Receipt Date: 20110601
  Transmission Date: 20111010
  Serious: No
  Sender: FDA-Public Use
  Company Number: US-B.I. PHARMACEUTICALS,INC./RIDGEFIELD-2011-BP-12395BP

PATIENT
  Sex: Male

DRUGS (7)
  1. PRADAXA [Suspect]
     Indication: ATRIAL FIBRILLATION
     Route: 048
     Dates: start: 20110301
  2. VENTOLIN HFA [Concomitant]
  3. INDOLIN [Concomitant]
  4. CELEBREX [Concomitant]
  5. HYDROCODONE [Concomitant]
  6. LIPITOR [Concomitant]
  7. ACETAMINOPHEN [Concomitant]

REACTIONS (2)
  - COGNITIVE DISORDER [None]
  - NAUSEA [None]
